FAERS Safety Report 7957250-7 (Version None)
Quarter: 2011Q4

REPORT INFORMATION
  Report Type: 
  Country: None (occurrence: None)
  Receive Date: 20111201
  Receipt Date: 20111115
  Transmission Date: 20120403
  Serious: Yes (Hospitalization, Other)
  Sender: FDA-Public Use
  Company Number: THQ2011A06720

PATIENT
  Age: 68 Year
  Sex: Male

DRUGS (15)
  1. NIMESULIDE [Concomitant]
  2. LOSARTAN POTASSIUM [Concomitant]
  3. HYDROCHLOROTHIAZIDE [Concomitant]
  4. IBUPROFEN [Concomitant]
  5. VILDAGLIPTIN [Concomitant]
  6. ACETAMINOPHEN [Concomitant]
  7. ACTOS [Suspect]
     Indication: DIABETES MELLITUS
     Dosage: 30 MG (30 MG, 1 IN 1 D), PER ORAL
     Route: 048
     Dates: start: 20081111, end: 20110815
  8. OMEPRAZOLE [Concomitant]
  9. DICLOPHENAC (DICLOFENAC SODIUM) [Concomitant]
  10. ATORVASTATIN [Concomitant]
  11. AMLODIPINE [Concomitant]
  12. METFORMIN HYDROCHLORIDE [Concomitant]
  13. METAMIZOLE [Concomitant]
  14. DOBICA (CALCIUM DOBESILATE) [Concomitant]
  15. TRAMADOLE (TRAMADOLE HYDROCHLORIDE) [Concomitant]

REACTIONS (1)
  - BLADDER TRANSITIONAL CELL CARCINOMA [None]
